FAERS Safety Report 8472475-2 (Version None)
Quarter: 2012Q2

REPORT INFORMATION
  Report Type: 
  Country: None (occurrence: None)
  Receive Date: 20120627
  Receipt Date: 20111025
  Transmission Date: 20120825
  Serious: No
  Sender: FDA-Public Use
  Company Number: US-AMGEN-USASP2011055728

PATIENT
  Age: 62 Year
  Sex: Male

DRUGS (1)
  1. PROCRIT [Suspect]
     Indication: DIALYSIS
     Dosage: UNK
     Route: 042
     Dates: start: 20050101

REACTIONS (1)
  - GLARE [None]
